FAERS Safety Report 9275968 (Version 1)
Quarter: 2013Q2

REPORT INFORMATION
  Report Type: Spontaneous
  Country: US (occurrence: US)
  Receive Date: 20130507
  Receipt Date: 20130507
  Transmission Date: 20140414
  Serious: No
  Sender: FDA-Public Use
  Company Number: US-009507513-1305USA000016

PATIENT
  Age: 27 Year
  Sex: Female
  Weight: 92.97 kg

DRUGS (2)
  1. NEXPLANON [Suspect]
     Indication: CONTRACEPTION
     Dosage: 1 ROD UP TO 3 HR
     Route: 058
     Dates: start: 20130404
  2. VITAMINS (UNSPECIFIED) [Concomitant]

REACTIONS (6)
  - Skin warm [Unknown]
  - Pruritus [Unknown]
  - Hypoaesthesia [Unknown]
  - Headache [Unknown]
  - Contusion [Unknown]
  - Pain of skin [Unknown]
